FAERS Safety Report 8809576 (Version 1)
Quarter: 2012Q4

REPORT INFORMATION
  Report Type: 
  Country: US (occurrence: US)
  Receive Date: 20120926
  Receipt Date: 20120926
  Transmission Date: 20130627
  Serious: No
  Sender: FDA-Public Use
  Company Number: US-ASTRAZENECA-2012SE71281

PATIENT
  Age: 32 Year
  Sex: Female
  Weight: 90.7 kg

DRUGS (1)
  1. SEROQUEL [Suspect]
     Indication: BIPOLAR DISORDER
     Route: 048
     Dates: start: 2007, end: 20120915

REACTIONS (4)
  - Insomnia [Unknown]
  - Irritability [Unknown]
  - Fatigue [Unknown]
  - Drug dose omission [Unknown]
